FAERS Safety Report 5202152-2 (Version None)
Quarter: 2007Q1

REPORT INFORMATION
  Report Type: 
  Country: None (occurrence: None)
  Receive Date: 20070109
  Receipt Date: 20070102
  Transmission Date: 20070707
  Serious: Yes (Hospitalization, Disabling)
  Sender: FDA-Public Use
  Company Number: US-ROCHE-340457

PATIENT
  Age: 23 Year
  Sex: Female
  Weight: 55.8 kg

DRUGS (4)
  1. ACCUTANE [Suspect]
     Indication: ACNE
     Dosage: INDICATION REPORTED AS ANE VULGARIS AND ACNE ROSACEA.
     Route: 048
     Dates: start: 19970624, end: 19971121
  2. ACCUTANE [Suspect]
     Dosage: INDICATION REPORTED AS ANE VULGARIS AND ACNE ROSACEA.
     Route: 048
     Dates: start: 20010110, end: 20010608
  3. ACCUTANE [Suspect]
     Dosage: INDICATION REPORTED AS ANE VULGARIS AND ACNE ROSACEA.
     Route: 048
     Dates: start: 20030317, end: 20030517
  4. ORAL CONTRACEPTIVES NOS [Concomitant]
     Dosage: DAILY.
     Route: 048

REACTIONS (14)
  - ANAEMIA [None]
  - ANHEDONIA [None]
  - ANXIETY [None]
  - COLITIS [None]
  - COLITIS ULCERATIVE [None]
  - DEHYDRATION [None]
  - DEPRESSION [None]
  - HEPATOTOXICITY [None]
  - INFLAMMATORY BOWEL DISEASE [None]
  - INJURY [None]
  - INTESTINAL HAEMORRHAGE [None]
  - MALAISE [None]
  - MUSCULOSKELETAL DISORDER [None]
  - OSTEOPENIA [None]
